FAERS Safety Report 18182364 (Version 1)
Quarter: 2020Q3

REPORT INFORMATION
  Report Type: Spontaneous
  Country: DE (occurrence: DE)
  Receive Date: 20200821
  Receipt Date: 20200821
  Transmission Date: 20201103
  Serious: Yes (Life-Threatening, Hospitalization)
  Sender: FDA-Public Use
  Company Number: DE-TEVA-2020-DE-1815994

PATIENT
  Age: 73 Year
  Sex: Male

DRUGS (15)
  1. FENTANYL. [Suspect]
     Active Substance: FENTANYL
     Dosage: 12 UG / H, LAST CHANGE 24?FEB?2020
     Route: 062
  2. COLECALCIFEROL (VITAMIN D) [Concomitant]
     Dosage: 20,000 IU / 2 WEEKS, 1X,
     Route: 048
  3. METAMIZOL [Concomitant]
     Active Substance: METAMIZOLE SODIUM
     Dosage: 500 MG, IF NECESSARY, DROPS
     Route: 048
  4. PANTOPRAZOL [Concomitant]
     Active Substance: PANTOPRAZOLE SODIUM
     Dosage: 40 MILLIGRAM DAILY; 1?0?0?0
     Route: 048
  5. METOPROLOL. [Concomitant]
     Active Substance: METOPROLOL
     Dosage: 95 MILLIGRAM DAILY;  1?0?1?0
     Route: 048
  6. ACETYLSALICYLSAURE [Concomitant]
     Active Substance: ASPIRIN
     Dosage: 100 MILLIGRAM DAILY; 0?1?0?0
     Route: 048
  7. IPRATROPIUM BROMIDE. [Concomitant]
     Active Substance: IPRATROPIUM BROMIDE
     Dosage: 250 UG, 2X
     Route: 055
  8. ISOSORBIDE DINITRATE. [Concomitant]
     Active Substance: ISOSORBIDE DINITRATE
     Dosage: 80 MILLIGRAM DAILY; 1?1?0?0
     Route: 048
  9. INSULIN GLARGIN [Concomitant]
     Active Substance: INSULIN GLARGINE
     Dosage: 12 IU (INTERNATIONAL UNIT) DAILY; 1?0?0?0
     Route: 048
  10. PIPAMPERON [Suspect]
     Active Substance: PIPAMPERONE HYDROCHLORIDE
     Dosage: 2.5 ML DAILY; 0?0?1?0
     Route: 048
  11. FOLSAURE [Concomitant]
     Active Substance: FOLIC ACID
     Dosage: .4 MILLIGRAM DAILY; 1?0?0?0
     Route: 048
  12. TORASEMID [Concomitant]
     Active Substance: TORSEMIDE
     Dosage: 40 MILLIGRAM DAILY; 1?1?0?0
     Route: 048
  13. SITAGLIPTIN [Concomitant]
     Active Substance: SITAGLIPTIN
     Dosage: .5 DOSAGE FORMS DAILY; 100 MG, 0.5?0?0?0
     Route: 048
  14. RAMIPRIL. [Concomitant]
     Active Substance: RAMIPRIL
     Dosage: 2.5 MILLIGRAM DAILY;  1?0?0?0
     Route: 048
  15. PREDNISOLON [Concomitant]
     Active Substance: PREDNISOLONE
     Dosage: 5 MILLIGRAM DAILY; 1?0?0?0
     Route: 048

REACTIONS (6)
  - Drug level increased [Unknown]
  - Disturbance in attention [Unknown]
  - Fall [Unknown]
  - Insomnia [Unknown]
  - Restlessness [Unknown]
  - Encephalitis [Unknown]
